FAERS Safety Report 18494282 (Version 1)
Quarter: 2020Q4

REPORT INFORMATION
  Report Type: Report from Study
  Country: None (occurrence: US)
  Receive Date: 20201111
  Receipt Date: 20201111
  Transmission Date: 20210114
  Serious: Yes (Other)
  Sender: FDA-Public Use
  Company Number: US-ABBVIE-20K-163-3561934-00

PATIENT
  Sex: Female

DRUGS (2)
  1. HUMIRA [Suspect]
     Active Substance: ADALIMUMAB
     Indication: HIDRADENITIS
     Dosage: CITRATE FREE
     Route: 058
  2. HUMIRA [Suspect]
     Active Substance: ADALIMUMAB
     Indication: CROHN^S DISEASE
     Dosage: CITRATE FREE
     Route: 058
     Dates: start: 202003

REACTIONS (7)
  - Nausea [Not Recovered/Not Resolved]
  - Hidradenitis [Recovering/Resolving]
  - Uterine dilation and curettage [Recovered/Resolved]
  - Abdominal pain upper [Recovering/Resolving]
  - Skin disorder [Unknown]
  - Weight increased [Not Recovered/Not Resolved]
  - Injection site hypoaesthesia [Unknown]

NARRATIVE: CASE EVENT DATE: 2020
